FAERS Safety Report 9360610 (Version 3)
Quarter: 2013Q3

REPORT INFORMATION
  Report Type: Spontaneous
  Country: DE (occurrence: DE)
  Receive Date: 20130621
  Receipt Date: 20130726
  Transmission Date: 20140515
  Serious: Yes (Other)
  Sender: FDA-Public Use
  Company Number: DE-NOVOPROD-380790

PATIENT
  Age: 37 Year
  Sex: Female
  Weight: 93 kg

DRUGS (6)
  1. NORDITROPIN FLEXPRO [Suspect]
     Indication: GROWTH HORMONE DEFICIENCY
     Dosage: 0.5 MG, QD
     Route: 058
     Dates: start: 20110728
  2. DESMIN                             /00361902/ [Concomitant]
     Indication: PRODUCT USED FOR UNKNOWN INDICATION
     Route: 048
  3. MICARDIS [Concomitant]
     Indication: PRODUCT USED FOR UNKNOWN INDICATION
     Route: 048
  4. METFORMIN [Concomitant]
     Indication: PRODUCT USED FOR UNKNOWN INDICATION
     Route: 048
  5. PANTOPRAZOL [Concomitant]
     Indication: PRODUCT USED FOR UNKNOWN INDICATION
     Route: 048
  6. CALCIMAGON D3 [Concomitant]
     Indication: PRODUCT USED FOR UNKNOWN INDICATION
     Route: 048

REACTIONS (1)
  - Cholelithiasis [Recovered/Resolved]
